FAERS Safety Report 19487829 (Version 2)
Quarter: 2021Q3

REPORT INFORMATION
  Report Type: Spontaneous
  Country: CO (occurrence: CO)
  Receive Date: 20210702
  Receipt Date: 20210831
  Transmission Date: 20211014
  Serious: Yes (Other)
  Sender: FDA-Public Use
  Company Number: CO-PFIZER INC-2021762239

PATIENT
  Sex: Female

DRUGS (2)
  1. ATIVAN [Suspect]
     Active Substance: LORAZEPAM
     Indication: DEPRESSION
     Dosage: UNK
     Dates: start: 2006
  2. ATIVAN [Suspect]
     Active Substance: LORAZEPAM
     Indication: PARKINSON^S DISEASE

REACTIONS (4)
  - Parkinson^s disease [Unknown]
  - Mental impairment [Unknown]
  - Incorrect product administration duration [Unknown]
  - General physical health deterioration [Unknown]

NARRATIVE: CASE EVENT DATE: 2006
